FAERS Safety Report 13951959 (Version 2)
Quarter: 2017Q3

REPORT INFORMATION
  Report Type: Spontaneous
  Country: GB (occurrence: GB)
  Receive Date: 20170910
  Receipt Date: 20170930
  Transmission Date: 20171128
  Serious: Yes (Death, Hospitalization, Other)
  Sender: FDA-Public Use
  Company Number: GB-AMGEN-GBRSP2017133799

PATIENT
  Age: 77 Year
  Sex: Male

DRUGS (3)
  1. MIMPARA [Suspect]
     Active Substance: CINACALCET HYDROCHLORIDE
     Indication: HYPERPARATHYROIDISM PRIMARY
     Dosage: 30 MG, UNK
     Route: 048
  2. MIMPARA [Suspect]
     Active Substance: CINACALCET HYDROCHLORIDE
     Dosage: 60 MG, UNK
     Route: 048
  3. PROLIA [Suspect]
     Active Substance: DENOSUMAB
     Indication: PRODUCT USED FOR UNKNOWN INDICATION
     Dosage: 60 MG, UNK
     Route: 065

REACTIONS (6)
  - Acute kidney injury [Unknown]
  - Blood calcium increased [Not Recovered/Not Resolved]
  - Dysphagia [Unknown]
  - Delirium [Unknown]
  - Pneumonia aspiration [Fatal]
  - Constipation [Unknown]
